FAERS Safety Report 20418998 (Version 2)
Quarter: 2022Q1

REPORT INFORMATION
  Report Type: Spontaneous
  Country: CA (occurrence: CA)
  Receive Date: 20220203
  Receipt Date: 20220210
  Transmission Date: 20220423
  Serious: No
  Sender: FDA-Public Use
  Company Number: CA-LUPIN PHARMACEUTICALS INC.-2022-01141

PATIENT
  Age: 13 Year
  Sex: Female

DRUGS (1)
  1. JENCYCLA [Suspect]
     Active Substance: NORETHINDRONE
     Indication: Menstruation irregular
     Dosage: UNK
     Route: 065

REACTIONS (4)
  - Illness [Unknown]
  - Throat irritation [Unknown]
  - Dysphagia [Unknown]
  - Product use in unapproved indication [Unknown]
